FAERS Safety Report 19780367 (Version 1)
Quarter: 2021Q3

REPORT INFORMATION
  Report Type: Spontaneous
  Country: NO (occurrence: NO)
  Receive Date: 20210902
  Receipt Date: 20210902
  Transmission Date: 20211014
  Serious: Yes (Life-Threatening)
  Sender: FDA-Public Use
  Company Number: NO-GLAXOSMITHKLINE-NOCH2021059574

PATIENT
  Age: 44 Year
  Sex: Female

DRUGS (2)
  1. DICLOFENAC [Suspect]
     Active Substance: DICLOFENAC
     Indication: BACK PAIN
     Dosage: UNK (TOOK 5 TABLETS OVER THE COURSE OF 4 DAYS)
     Route: 054
     Dates: start: 202102, end: 202102
  2. PARACET [Concomitant]
     Indication: PAIN
     Dosage: UNK (1000MG 5 GANGER OVER 4 DAGER)
     Route: 065
     Dates: start: 202102

REACTIONS (4)
  - Chest pain [Recovered/Resolved]
  - General physical health deterioration [Recovered/Resolved]
  - Dyspnoea [Recovered/Resolved]
  - Generalised oedema [Recovered/Resolved]

NARRATIVE: CASE EVENT DATE: 202102
